FAERS Safety Report 6788739-4 (Version None)
Quarter: 2010Q2

REPORT INFORMATION
  Report Type: 
  Country: None (occurrence: None)
  Receive Date: 20100623
  Receipt Date: 20080512
  Transmission Date: 20101027
  Serious: No
  Sender: FDA-Public Use
  Company Number: US-PFIZER INC-2008041567

PATIENT
  Sex: Male

DRUGS (1)
  1. CADUET [Suspect]

REACTIONS (2)
  - MUSCLE SPASMS [None]
  - PARAESTHESIA [None]
